FAERS Safety Report 4552031-9 (Version None)
Quarter: 2005Q1

REPORT INFORMATION
  Report Type: 
  Country: None (occurrence: None)
  Receive Date: 20050112
  Receipt Date: 20050103
  Transmission Date: 20050727
  Serious: Yes (Death, Life-Threatening, Hospitalization)
  Sender: FDA-Public Use
  Company Number: 2005003981

PATIENT
  Age: 76 Year
  Sex: Male
  Weight: 63.05 kg

DRUGS (3)
  1. TIKOSYN [Suspect]
     Indication: ATRIAL FIBRILLATION
     Dosage: 750 MCG (250 MCG, 3 IN 1 D), ORAL
     Route: 048
     Dates: start: 20030101, end: 20050101
  2. COMBIVENT [Concomitant]
  3. THEOPHYLLINE [Concomitant]

REACTIONS (3)
  - PCO2 INCREASED [None]
  - REFUSAL OF TREATMENT BY PATIENT [None]
  - RESPIRATORY FAILURE [None]
